FAERS Safety Report 9775745 (Version 2)
Quarter: 2014Q1

REPORT INFORMATION
  Report Type: Spontaneous
  Country: JP (occurrence: JP)
  Receive Date: 20131220
  Receipt Date: 20140213
  Transmission Date: 20141002
  Serious: Yes (Hospitalization, Disabling, Other)
  Sender: FDA-Public Use
  Company Number: JP-BRISTOL-MYERS SQUIBB COMPANY-19930635

PATIENT
  Sex: Male
  Weight: 41 kg

DRUGS (6)
  1. ERBITUX SOLN FOR INF 5MG/ML [Suspect]
     Indication: OROPHARYNGEAL CANCER
     Dosage: 23SEP13 - 23SEP13?2013 -12NOV2013
     Route: 041
     Dates: start: 20130923, end: 20131112
  2. CISPLATIN [Concomitant]
     Indication: OROPHARYNGEAL CANCER
     Route: 041
  3. 5-FU [Concomitant]
     Indication: OROPHARYNGEAL CANCER
     Route: 041
     Dates: start: 20130923, end: 20131026
  4. MINOPEN [Concomitant]
     Indication: PROPHYLAXIS
     Dosage: TABS
     Route: 048
     Dates: start: 20130923
  5. TAKEPRON [Concomitant]
     Indication: PROPHYLAXIS
     Route: 048
     Dates: start: 20130606
  6. OPALMON [Concomitant]
     Indication: INTERVERTEBRAL DISC PROTRUSION
     Route: 048
     Dates: start: 20130422

REACTIONS (5)
  - Oedema peripheral [Recovered/Resolved]
  - Rash [Not Recovered/Not Resolved]
  - Dry skin [Recovered/Resolved]
  - Paronychia [Recovered/Resolved]
  - Venous thrombosis limb [Unknown]
